FAERS Safety Report 23105224 (Version 3)
Quarter: 2023Q4

REPORT INFORMATION
  Report Type: Spontaneous
  Country: ES (occurrence: None)
  Receive Date: 20231025
  Receipt Date: 20231101
  Transmission Date: 20240109
  Serious: Yes (Other)
  Sender: FDA-Public Use
  Company Number: 2023A235971

PATIENT
  Age: 48 Year
  Sex: Male

DRUGS (5)
  1. QUETIAPINE [Interacting]
     Active Substance: QUETIAPINE
     Indication: Substance abuse
     Dosage: 400.0MG ONCE/SINGLE ADMINISTRATION
     Route: 045
     Dates: start: 20230913, end: 20230913
  2. RIVOTRIL [Interacting]
     Active Substance: CLONAZEPAM
     Indication: Substance abuse
     Dosage: 40 DROP ONCE/SINGLE ADMINISTRATION
     Route: 048
     Dates: start: 20230913, end: 20230913
  3. GABAPENTIN [Interacting]
     Active Substance: GABAPENTIN
     Indication: Substance abuse
     Dosage: ONCE/SINGLE ADMINISTRATION
     Route: 048
     Dates: start: 20230913, end: 20230913
  4. PREGABALIN [Concomitant]
     Active Substance: PREGABALIN
  5. PALIPERIDONE PALMITATE [Concomitant]
     Active Substance: PALIPERIDONE PALMITATE

REACTIONS (4)
  - Depressed level of consciousness [Recovered/Resolved]
  - Ataxia [Recovered/Resolved]
  - Dysarthria [Recovered/Resolved]
  - Intentional overdose [Recovered/Resolved]

NARRATIVE: CASE EVENT DATE: 20230913
